FAERS Safety Report 11355564 (Version 1)
Quarter: 2015Q3

REPORT INFORMATION
  Report Type: Report from Study
  Country: US (occurrence: US)
  Receive Date: 20150807
  Receipt Date: 20150807
  Transmission Date: 20151125
  Serious: No
  Sender: FDA-Public Use
  Company Number: US-ABBVIE-15P-163-1424674-00

PATIENT
  Sex: Male
  Weight: 88.98 kg

DRUGS (4)
  1. VIEKIRA PAK [Suspect]
     Active Substance: DASABUVIR\OMBITASVIR\PARITAPREVIR\RITONAVIR
     Indication: CHRONIC HEPATITIS C
     Dosage: 3 AND 1; DURATION 2-3 WKS AGO
     Route: 048
     Dates: start: 201506
  2. METOPROLOL [Concomitant]
     Active Substance: METOPROLOL
     Indication: FLUID RETENTION
  3. LOSARTAN. [Concomitant]
     Active Substance: LOSARTAN
     Indication: BLOOD PRESSURE MEASUREMENT
  4. MEGAMAN MULTIVITAMIN [Concomitant]
     Indication: PRODUCT USED FOR UNKNOWN INDICATION
     Dosage: DAILY OR PRN ON OCCASION

REACTIONS (1)
  - Fatigue [Not Recovered/Not Resolved]
